FAERS Safety Report 11326184 (Version 1)
Quarter: 2015Q3

REPORT INFORMATION
  Report Type: Spontaneous
  Country: DE (occurrence: DE)
  Receive Date: 20150731
  Receipt Date: 20150731
  Transmission Date: 20151125
  Serious: Yes (Hospitalization)
  Sender: FDA-Public Use
  Company Number: PHHY2015DE091938

PATIENT
  Age: 18 Year
  Sex: Male

DRUGS (7)
  1. LEPONEX [Suspect]
     Active Substance: CLOZAPINE
     Indication: PRODUCT USED FOR UNKNOWN INDICATION
     Dosage: 12.5 MG-150 MG
     Route: 048
     Dates: start: 20101104, end: 20101124
  2. HALDOL [Suspect]
     Active Substance: HALOPERIDOL
     Indication: PRODUCT USED FOR UNKNOWN INDICATION
     Dosage: 6 MG, QD (1 DAY)
     Route: 048
     Dates: start: 20101013, end: 20101020
  3. RISPERDAL [Concomitant]
     Active Substance: RISPERIDONE
     Indication: PRODUCT USED FOR UNKNOWN INDICATION
     Dosage: 5 MG, QD (1 DAY)
     Route: 048
     Dates: start: 20101014, end: 20101114
  4. TAVOR [Suspect]
     Active Substance: LORAZEPAM
     Indication: PRODUCT USED FOR UNKNOWN INDICATION
     Dosage: 2 MG, QD (1DAY)
     Route: 048
     Dates: start: 20101013, end: 20101026
  5. CONCOR [Concomitant]
     Active Substance: BISOPROLOL FUMARATE
     Indication: PRODUCT USED FOR UNKNOWN INDICATION
     Dosage: 2.5 MG, QD (1 DAY)
     Route: 048
     Dates: start: 20101109, end: 20101124
  6. SEROQUEL [Concomitant]
     Active Substance: QUETIAPINE FUMARATE
     Indication: PRODUCT USED FOR UNKNOWN INDICATION
     Dosage: 400 MG, BID
     Route: 048
     Dates: start: 20101124
  7. AKINETON [Concomitant]
     Active Substance: BIPERIDEN HYDROCHLORIDE
     Indication: PRODUCT USED FOR UNKNOWN INDICATION
     Dosage: 4 MG, QD (1 DAY)
     Route: 048
     Dates: start: 20101018, end: 20101025

REACTIONS (5)
  - Leukocytosis [Recovered/Resolved]
  - Myocarditis [Recovered/Resolved]
  - Blood creatine phosphokinase increased [Recovered/Resolved]
  - C-reactive protein increased [Recovered/Resolved]
  - Electrocardiogram abnormal [Recovered/Resolved]

NARRATIVE: CASE EVENT DATE: 20101116
